FAERS Safety Report 9096999 (Version 1)
Quarter: 2013Q1

REPORT INFORMATION
  Report Type: Spontaneous
  Country: US (occurrence: None)
  Receive Date: 20130125
  Receipt Date: 20130125
  Transmission Date: 20140127
  Serious: Yes (Other)
  Sender: FDA-Public Use
  Company Number: 2013ST000022

PATIENT
  Age: 71 Year
  Sex: Male

DRUGS (4)
  1. ZEGERID [Suspect]
     Route: 048
     Dates: end: 20121120
  2. COZAAR [Concomitant]
  3. CRESTOR [Concomitant]
  4. CELEXA /00582602/ [Concomitant]

REACTIONS (2)
  - Optic neuritis [None]
  - Blindness unilateral [None]
